FAERS Safety Report 7751442-8 (Version None)
Quarter: 2011Q3

REPORT INFORMATION
  Report Type: 
  Country: None (occurrence: None)
  Receive Date: 20110914
  Receipt Date: 20110831
  Transmission Date: 20111222
  Serious: Yes (Other)
  Sender: FDA-Public Use
  Company Number: PHHY2011BR60315

PATIENT
  Age: 75 Year
  Sex: Male

DRUGS (2)
  1. SIMVASTATIN [Concomitant]
     Indication: BLOOD CHOLESTEROL
     Dosage: 1 DF, UNK
  2. DIOVAN [Suspect]
     Dosage: 1 DF, DAILY

REACTIONS (2)
  - PROSTATITIS [None]
  - PROSTATIC DISORDER [None]
